FAERS Safety Report 19705457 (Version 1)
Quarter: 2021Q3

REPORT INFORMATION
  Report Type: Spontaneous
  Country: US (occurrence: US)
  Receive Date: 20210816
  Receipt Date: 20210816
  Transmission Date: 20211014
  Serious: No
  Sender: FDA-Public Use
  Company Number: US-SA-2021SA264125

PATIENT
  Age: 59 Year
  Sex: Female

DRUGS (3)
  1. OZEMPIC [Concomitant]
     Active Substance: SEMAGLUTIDE
     Dosage: UNK UNK, QW
     Route: 065
  2. AFREZZA [Concomitant]
     Active Substance: INSULIN HUMAN
     Dosage: UNK
     Route: 065
  3. TOUJEO [Suspect]
     Active Substance: INSULIN GLARGINE
     Indication: TYPE 2 DIABETES MELLITUS
     Dosage: 22 IU, QD
     Route: 065

REACTIONS (1)
  - Intentional device misuse [Unknown]
